FAERS Safety Report 19355658 (Version 1)
Quarter: 2021Q2

REPORT INFORMATION
  Report Type: Spontaneous
  Country: US (occurrence: US)
  Receive Date: 20210601
  Receipt Date: 20210601
  Transmission Date: 20210717
  Serious: Yes (Hospitalization)
  Sender: FDA-Public Use
  Company Number: None

PATIENT
  Age: 76 Year
  Sex: Female

DRUGS (20)
  1. CLONIDINE. [Concomitant]
     Active Substance: CLONIDINE
  2. ELIQUIS [Concomitant]
     Active Substance: APIXABAN
  3. FUROSEMIDE. [Concomitant]
     Active Substance: FUROSEMIDE
  4. TIZANDINE [Concomitant]
     Active Substance: TIZANIDINE
  5. HYDRALAZINE [Concomitant]
     Active Substance: HYDRALAZINE HYDROCHLORIDE
  6. DONEZEPIL [Concomitant]
     Active Substance: DONEPEZIL
  7. LISINOPRIL. [Concomitant]
     Active Substance: LISINOPRIL
  8. MAG OXIDE [Concomitant]
     Active Substance: MAGNESIUM OXIDE
  9. METOPROLOL. [Concomitant]
     Active Substance: METOPROLOL
  10. PREDNISONE. [Concomitant]
     Active Substance: PREDNISONE
  11. TRAMADOL. [Concomitant]
     Active Substance: TRAMADOL
  12. OXYBUTININ [Concomitant]
     Active Substance: OXYBUTYNIN
  13. AMLODIPINE [Concomitant]
     Active Substance: AMLODIPINE BESYLATE
  14. ATENOLOL. [Concomitant]
     Active Substance: ATENOLOL
  15. POT CHLORIDE [Concomitant]
     Active Substance: POTASSIUM CHLORIDE
  16. ENBREL [Suspect]
     Active Substance: ETANERCEPT
     Indication: RHEUMATOID ARTHRITIS
     Route: 058
     Dates: start: 20180517
  17. DULOXETINE. [Concomitant]
     Active Substance: DULOXETINE
  18. METHOTREXATE. [Concomitant]
     Active Substance: METHOTREXATE
  19. FOLIC ACID. [Concomitant]
     Active Substance: FOLIC ACID
  20. OXYCODONE [Concomitant]
     Active Substance: OXYCODONE

REACTIONS (4)
  - Peripheral swelling [None]
  - Therapy interrupted [None]
  - Arthralgia [None]
  - Cerebrovascular accident [None]

NARRATIVE: CASE EVENT DATE: 202101
